FAERS Safety Report 11727800 (Version 1)
Quarter: 2015Q4

REPORT INFORMATION
  Report Type: Spontaneous
  Country: TW (occurrence: TW)
  Receive Date: 20151112
  Receipt Date: 20151112
  Transmission Date: 20160304
  Serious: Yes (Other)
  Sender: FDA-Public Use
  Company Number: TW-PFIZER INC-2015379965

PATIENT
  Age: 25 Year
  Sex: Female
  Weight: 51 kg

DRUGS (5)
  1. ZIPRASIDONE HCL [Suspect]
     Active Substance: ZIPRASIDONE HYDROCHLORIDE
     Dosage: 200 MG, DAILY
  2. OLANZAPINE. [Concomitant]
     Active Substance: OLANZAPINE
     Indication: SCHIZOPHRENIA, PARANOID TYPE
     Dosage: 20 MG, DAILY
  3. ZIPRASIDONE HCL [Suspect]
     Active Substance: ZIPRASIDONE HYDROCHLORIDE
     Indication: SCHIZOPHRENIA, PARANOID TYPE
     Dosage: 240 MG, DAILY (DIVIDED IN HALF AND TAKEN WITH FOOD TWICE DAILY)
  4. SULPIRIDE [Concomitant]
     Active Substance: SULPIRIDE
     Indication: SCHIZOPHRENIA, PARANOID TYPE
     Dosage: 400 MG, DAILY
  5. VALPROATE [Concomitant]
     Active Substance: VALPROATE SODIUM
     Indication: SCHIZOPHRENIA, PARANOID TYPE
     Dosage: 700 MG, DAILY

REACTIONS (3)
  - Akathisia [Unknown]
  - Metabolic syndrome [Unknown]
  - Weight increased [Unknown]
